FAERS Safety Report 8004137-X (Version None)
Quarter: 2011Q4

REPORT INFORMATION
  Report Type: 
  Country: None (occurrence: None)
  Receive Date: 20111223
  Receipt Date: 20111213
  Transmission Date: 20120403
  Serious: Yes (Death)
  Sender: FDA-Public Use
  Company Number: IL-RANBAXY-2010RR-34796

PATIENT
  Age: 28 Year
  Sex: Male
  Weight: 101 kg

DRUGS (10)
  1. DIAZEPAM [Suspect]
     Dosage: UNK
     Dates: start: 20090730
  2. NORTRIPTYLINE HYDROCHLORIDE [Suspect]
  3. AMITRIPTYLINE [Suspect]
     Dosage: UNK
     Dates: start: 20090730
  4. OXYCODONE HYDROCHLORIDE [Suspect]
     Indication: ACCIDENTAL OVERDOSE
     Dosage: UNK
     Dates: start: 20090730
  5. OXYCONTIN [Suspect]
     Indication: PAIN IN EXTREMITY
     Dosage: UNK
     Dates: start: 20090730
  6. OXYCODONE HYDROCHLORIDE [Suspect]
     Indication: TOOTHACHE
  7. ZOPICLONE [Suspect]
     Dosage: UNK
     Dates: start: 20090730
  8. NORDIAZEPAM [Suspect]
  9. DIHYDROCODEINE BITARTRATE INJ [Suspect]
     Indication: TOOTHACHE
  10. NAPROXEN [Suspect]

REACTIONS (4)
  - ACCIDENTAL OVERDOSE [None]
  - RESPIRATORY DEPRESSION [None]
  - MULTIPLE DRUG OVERDOSE ACCIDENTAL [None]
  - SELF-MEDICATION [None]
